FAERS Safety Report 15569404 (Version 3)
Quarter: 2018Q4

REPORT INFORMATION
  Report Type: Report from Study
  Country: US (occurrence: US)
  Receive Date: 20181031
  Receipt Date: 20181127
  Transmission Date: 20190205
  Serious: Yes (Hospitalization)
  Sender: FDA-Public Use
  Company Number: PHEH2018US046222

PATIENT
  Sex: Male

DRUGS (2)
  1. ENTRESTO [Suspect]
     Active Substance: SACUBITRIL\VALSARTAN
     Dosage: 1 DF (49 MG SACUBITRIL AND 51 MG VALSARTAN), UNK
     Route: 048
  2. ENTRESTO [Suspect]
     Active Substance: SACUBITRIL\VALSARTAN
     Indication: PRODUCT USED FOR UNKNOWN INDICATION
     Dosage: 1 DF (24 MG SACUBITRIL AND 26 MG VALSARTAN), UNK
     Route: 048

REACTIONS (6)
  - Sinusitis [Unknown]
  - Infection [Unknown]
  - Back pain [Unknown]
  - Abdominal pain upper [Unknown]
  - Hypersensitivity [Unknown]
  - Atrial fibrillation [Unknown]
